FAERS Safety Report 10381108 (Version 5)
Quarter: 2015Q1

REPORT INFORMATION
  Report Type: Spontaneous
  Country: US (occurrence: US)
  Receive Date: 20140813
  Receipt Date: 20150331
  Transmission Date: 20150720
  Serious: Yes (Hospitalization, Other)
  Sender: FDA-Public Use
  Company Number: US-PFIZER INC-2014221979

PATIENT
  Age: 74 Year
  Sex: Male

DRUGS (7)
  1. IBUPROFEN. [Concomitant]
     Active Substance: IBUPROFEN
     Dosage: AS NEEDED (PRN)
     Dates: end: 201407
  2. SUTENT [Suspect]
     Active Substance: SUNITINIB MALATE
     Indication: RENAL CANCER
     Dosage: 50 MG, (28-DAY CYCLE)
     Dates: start: 20140609
  3. SUTENT [Suspect]
     Active Substance: SUNITINIB MALATE
     Dosage: 25 MG, 1X/DAY
     Dates: end: 20141010
  4. MENS^S ONE A DAY [Concomitant]
     Dosage: UNK
  5. AMLODIPINE [Concomitant]
     Active Substance: AMLODIPINE BESYLATE
     Dosage: UNK
  6. CARVEDILOL. [Concomitant]
     Active Substance: CARVEDILOL
     Dosage: UNK
  7. AVODART [Concomitant]
     Active Substance: DUTASTERIDE
     Dosage: UNK

REACTIONS (16)
  - Hypertension [Unknown]
  - Oral pain [Not Recovered/Not Resolved]
  - Scar [Unknown]
  - Diarrhoea [Recovered/Resolved]
  - Asthenia [Recovering/Resolving]
  - Gingival pain [Not Recovered/Not Resolved]
  - Blood pressure decreased [Recovered/Resolved]
  - Nausea [Recovered/Resolved]
  - Feeling abnormal [Unknown]
  - Mastication disorder [Not Recovered/Not Resolved]
  - Skin fissures [Not Recovered/Not Resolved]
  - Blood pressure increased [Recovered/Resolved]
  - Malaise [Unknown]
  - Lymphadenopathy [Unknown]
  - Renal impairment [Recovering/Resolving]
  - Weight decreased [Unknown]

NARRATIVE: CASE EVENT DATE: 20140126
